FAERS Safety Report 10900178 (Version 4)
Quarter: 2015Q2

REPORT INFORMATION
  Report Type: Spontaneous
  Country: GB (occurrence: GB)
  Receive Date: 20150310
  Receipt Date: 20150515
  Transmission Date: 20150821
  Serious: Yes (Death, Other)
  Sender: FDA-Public Use
  Company Number: GB-AUROBINDO-AUR-APL-2015-01781

PATIENT
  Age: 39 Year
  Sex: Female

DRUGS (10)
  1. QUETIAPINE [Suspect]
     Active Substance: QUETIAPINE
     Dosage: 500MG ONCE AT NIGHT PLUS 25-50MG THREE TIMES DAILY / AS NECESSARY
     Route: 065
     Dates: start: 201502
  2. LORAZEPAM. [Concomitant]
     Active Substance: LORAZEPAM
     Indication: ANXIETY
     Dosage: 0.5-1MG TWICE DAILY / AS NECESSARY FOR 3 DAYS FOR SEVERE ANXIETY
     Route: 065
     Dates: start: 20150204
  3. LAMOTRIGINE 25MG [Suspect]
     Active Substance: LAMOTRIGINE
     Dosage: 50 MG, ONCE A DAY, TO COMMENCE FOLLOWING COMPLETION OF 25 MG LAMOTRIGINE DAILY
     Route: 048
     Dates: start: 201501
  4. LAMOTRIGINE 25MG [Suspect]
     Active Substance: LAMOTRIGINE
     Indication: BIPOLAR I DISORDER
     Dosage: 25 MG, ONCE A DAY
     Route: 048
     Dates: start: 20150106
  5. LAMOTRIGINE 25MG [Suspect]
     Active Substance: LAMOTRIGINE
     Dosage: 100 MG, ONCE A DAY, 25MG OD FOR 2 WEEKS THEN 50MG OD FOR 2 WEEKS, THEN 100MG ONCE DAILY FROM 05 02 1
     Route: 048
     Dates: start: 20150207, end: 20150209
  6. QUETIAPINE [Suspect]
     Active Substance: QUETIAPINE
     Dosage: 400MG ONCE AT NIGHT PLUS 25-50MG THREE TIMES DAILY / AS NECESSARY
     Route: 065
     Dates: start: 20150204, end: 201502
  7. QUETIAPINE [Suspect]
     Active Substance: QUETIAPINE
     Indication: BIPOLAR I DISORDER
     Dosage: UNK
     Route: 065
  8. QUETIAPINE [Suspect]
     Active Substance: QUETIAPINE
     Dosage: UNK, 25-50MG THREE TIMES DAILY / AS NECESSARY
     Route: 065
     Dates: start: 20150204
  9. MIRTAZAPINE. [Suspect]
     Active Substance: MIRTAZAPINE
     Indication: PRODUCT USED FOR UNKNOWN INDICATION
     Dosage: UNK
     Route: 065
  10. QUETIAPINE [Suspect]
     Active Substance: QUETIAPINE
     Dosage: 300 MG, DAILY
     Route: 065

REACTIONS (6)
  - Overdose [Fatal]
  - Cardiac arrest [Fatal]
  - Depression [Not Recovered/Not Resolved]
  - Paranoia [Not Recovered/Not Resolved]
  - Seizure [Fatal]
  - Persecutory delusion [Not Recovered/Not Resolved]

NARRATIVE: CASE EVENT DATE: 20150204
